FAERS Safety Report 8612727-6 (Version None)
Quarter: 2012Q3

REPORT INFORMATION
  Report Type: 
  Country: None (occurrence: None)
  Receive Date: 20120822
  Receipt Date: 20110822
  Transmission Date: 20120928
  Serious: No
  Sender: FDA-Public Use
  Company Number: US-ASTRAZENECA-2011SE50492

PATIENT
  Age: 62 Year
  Sex: Male
  Weight: 127 kg

DRUGS (8)
  1. CLONIDINE [Concomitant]
  2. PROCARDIA [Concomitant]
  3. TOPROL-XL [Concomitant]
  4. PLAVIX [Concomitant]
  5. METFORMIN [Concomitant]
  6. SINGULAIR [Concomitant]
  7. SYMBICORT [Suspect]
     Indication: ASTHMA
     Dosage: 2 PUFFS DAILY
     Route: 055
     Dates: start: 20090101
  8. ANFLON SHOTS [Concomitant]

REACTIONS (2)
  - EMPHYSEMA [None]
  - BLOOD GLUCOSE INCREASED [None]
